FAERS Safety Report 7775556-1 (Version None)
Quarter: 2011Q3

REPORT INFORMATION
  Report Type: 
  Country: None (occurrence: None)
  Receive Date: 20110923
  Receipt Date: 20110914
  Transmission Date: 20111222
  Serious: Yes (Other)
  Sender: FDA-Public Use
  Company Number: CA-JNJFOC-20110906891

PATIENT
  Sex: Female
  Weight: 59.6 kg

DRUGS (11)
  1. ALENDRONATE SODIUM [Concomitant]
     Indication: OSTEOPOROSIS
     Route: 065
  2. VITAMIN B-12 [Concomitant]
     Route: 065
  3. REMICADE [Suspect]
     Indication: RHEUMATOID ARTHRITIS
     Route: 042
     Dates: start: 20020820
  4. HYDROCHLOROTHIAZIDE [Concomitant]
     Indication: HYPERTENSION
     Route: 048
  5. FOLIC ACID [Concomitant]
     Route: 065
  6. REMICADE [Suspect]
     Route: 042
     Dates: start: 20110726
  7. REMICADE [Suspect]
     Route: 042
     Dates: start: 20110914
  8. ASPIRIN [Concomitant]
     Indication: PROPHYLAXIS
     Route: 048
  9. METHOTREXATE [Concomitant]
     Indication: RHEUMATOID ARTHRITIS
     Route: 048
  10. ATENOLOL [Concomitant]
     Route: 048
  11. CALCIUM CARBONATE [Concomitant]
     Route: 065

REACTIONS (2)
  - GASTROINTESTINAL SOUNDS ABNORMAL [None]
  - CYST [None]
